FAERS Safety Report 24680572 (Version 2)
Quarter: 2024Q4

REPORT INFORMATION
  Report Type: Spontaneous
  Country: CA (occurrence: CA)
  Receive Date: 20241129
  Receipt Date: 20241229
  Transmission Date: 20250115
  Serious: Yes (Other)
  Sender: NOVO NORDISK
  Company Number: CA-NOVOPROD-1321998

PATIENT
  Age: 56 Year
  Sex: Female
  Weight: 98 kg

DRUGS (5)
  1. OZEMPIC [Suspect]
     Active Substance: SEMAGLUTIDE
     Indication: Product used for unknown indication
     Dosage: 0.25 MG, QW
     Route: 058
     Dates: start: 20241014, end: 20241014
  2. METFORMIN [Concomitant]
     Active Substance: METFORMIN HYDROCHLORIDE
     Indication: Type 2 diabetes mellitus
     Dosage: 2000 MG, QD
     Route: 048
     Dates: start: 2015
  3. CRESTOR [Concomitant]
     Active Substance: ROSUVASTATIN CALCIUM
     Dosage: 10, QD
     Route: 048
     Dates: start: 202208
  4. RAMIPRIL [Concomitant]
     Active Substance: RAMIPRIL
     Indication: Hypertension
     Dosage: 7.5 MG
     Route: 048
  5. ASPIRIN [Concomitant]
     Active Substance: ASPIRIN
     Dosage: 80 MG
     Route: 048

REACTIONS (3)
  - Hypoaesthesia oral [Recovered/Resolved]
  - Dyspnoea [Recovered/Resolved]
  - Tongue disorder [Recovered/Resolved]

NARRATIVE: CASE EVENT DATE: 20241014
